FAERS Safety Report 15899977 (Version 1)
Quarter: 2019Q1

REPORT INFORMATION
  Report Type: Spontaneous
  Country: US (occurrence: US)
  Receive Date: 20190201
  Receipt Date: 20190201
  Transmission Date: 20190417
  Serious: No
  Sender: FDA-Public Use
  Company Number: US-ASTRAZENECA-2019SE02977

PATIENT
  Age: 24238 Day
  Sex: Male
  Weight: 97.5 kg

DRUGS (2)
  1. BYDUREON [Suspect]
     Active Substance: EXENATIDE
     Indication: TYPE 2 DIABETES MELLITUS
     Route: 058
     Dates: start: 20181228
  2. INSULIN [Concomitant]
     Active Substance: INSULIN NOS
     Dosage: 5 OR 6 UNITS

REACTIONS (2)
  - Injection site haemorrhage [Unknown]
  - Incorrect dose administered by device [Recovered/Resolved]

NARRATIVE: CASE EVENT DATE: 20190104
